FAERS Safety Report 5104429-8 (Version None)
Quarter: 2006Q3

REPORT INFORMATION
  Report Type: 
  Country: None (occurrence: None)
  Receive Date: 20060914
  Receipt Date: 20060723
  Transmission Date: 20061208
  Serious: Yes (Death, Hospitalization, Other)
  Sender: FDA-Public Use
  Company Number: US-AMGEN-US187500

PATIENT
  Sex: Female
  Weight: 69.9 kg

DRUGS (9)
  1. ENBREL [Suspect]
     Indication: RHEUMATOID ARTHRITIS
     Route: 058
     Dates: start: 19981201, end: 20060207
  2. PREMARIN [Concomitant]
     Route: 065
     Dates: start: 20000101, end: 20060201
  3. VITAMIN E [Concomitant]
     Route: 065
     Dates: start: 20000101, end: 20060201
  4. ZINC [Concomitant]
     Route: 065
     Dates: start: 20000101, end: 20060201
  5. DARVOCET [Concomitant]
     Route: 065
     Dates: start: 20000101, end: 20060201
  6. VERAPAMIL [Concomitant]
     Route: 065
     Dates: start: 20000101, end: 20060201
  7. DYAZIDE [Concomitant]
     Route: 065
     Dates: start: 20000101, end: 20060201
  8. CALCIUM GLUCONATE [Concomitant]
     Route: 065
     Dates: start: 20000101, end: 20060201
  9. PREDNISONE TAB [Concomitant]
     Route: 065
     Dates: start: 20051223, end: 20060201

REACTIONS (5)
  - CEREBROVASCULAR ACCIDENT [None]
  - DEATH [None]
  - MYOCARDIAL INFARCTION [None]
  - PNEUMONIA [None]
  - PNEUMONITIS [None]
